FAERS Safety Report 17605795 (Version 1)
Quarter: 2020Q1

REPORT INFORMATION
  Report Type: Spontaneous
  Country: US (occurrence: US)
  Receive Date: 20200331
  Receipt Date: 20200331
  Transmission Date: 20200409
  Serious: No
  Sender: FDA-Public Use
  Company Number: US-ACTELION-A-NJ2020-203718

PATIENT
  Age: 75 Year
  Sex: Female

DRUGS (1)
  1. VENTAVIS [Suspect]
     Active Substance: ILOPROST
     Indication: PULMONARY ARTERIAL HYPERTENSION
     Dosage: 10 MCG, 9 TIMES DAILY
     Route: 055
     Dates: start: 20200318, end: 20200321

REACTIONS (2)
  - Chest discomfort [Unknown]
  - Panic attack [Unknown]

NARRATIVE: CASE EVENT DATE: 202003
